FAERS Safety Report 9713995 (Version 1)
Quarter: 2013Q4

REPORT INFORMATION
  Report Type: Spontaneous
  Country: US (occurrence: US)
  Receive Date: 20131126
  Receipt Date: 20131126
  Transmission Date: 20140711
  Serious: No
  Sender: FDA-Public Use
  Company Number: US-GILEAD-2008-0018465

PATIENT
  Sex: Female
  Weight: 102.51 kg

DRUGS (11)
  1. LETAIRIS [Suspect]
     Indication: PULMONARY ARTERIAL HYPERTENSION
     Route: 048
     Dates: start: 20080929
  2. LASIX [Concomitant]
  3. CYMBALTA [Concomitant]
  4. TYLENOL [Concomitant]
  5. LYRICA [Concomitant]
  6. NEXIUM [Concomitant]
  7. CRESTOR [Concomitant]
  8. DILTIAZEM [Concomitant]
  9. HYDROCODONE [Concomitant]
  10. AGGRENOX [Concomitant]
  11. DIPHENHYDRAMINE [Concomitant]

REACTIONS (2)
  - Dizziness [None]
  - Local swelling [None]
